FAERS Safety Report 4342237-6 (Version None)
Quarter: 2004Q2

REPORT INFORMATION
  Report Type: 
  Country: None (occurrence: None)
  Receive Date: 20040415
  Receipt Date: 20040330
  Transmission Date: 20050107
  Serious: Yes (Death)
  Sender: FDA-Public Use
  Company Number: FR_040303830

PATIENT
  Sex: Female

DRUGS (5)
  1. ZYPREXA [Suspect]
     Dosage: 30 MG/1 OTHER
     Dates: start: 20040301, end: 20040301
  2. DIURETIC [Concomitant]
  3. HALDOL [Concomitant]
  4. TERCIAN (CYAMEMAZINE) [Concomitant]
  5. UNSPECIFIED NEUROLEPTIC [Concomitant]

REACTIONS (1)
  - DEATH [None]
